FAERS Safety Report 7321838-7 (Version None)
Quarter: 2011Q1

REPORT INFORMATION
  Report Type: 
  Country: None (occurrence: None)
  Receive Date: 20110228
  Receipt Date: 20110216
  Transmission Date: 20110831
  Serious: Yes (Other)
  Sender: FDA-Public Use
  Company Number: TW-PFIZER INC-2011041490

PATIENT
  Age: 23 Year
  Sex: Female

DRUGS (1)
  1. NICOTINE [Suspect]
     Indication: SMOKING CESSATION THERAPY
     Dosage: 10 MG, INHALATION
     Route: 055
     Dates: start: 20110201

REACTIONS (3)
  - NARCOLEPSY [None]
  - OVERDOSE [None]
  - DYSGEUSIA [None]
